FAERS Safety Report 11917073 (Version 1)
Quarter: 2016Q1

REPORT INFORMATION
  Report Type: Spontaneous
  Country: FR (occurrence: FR)
  Receive Date: 20160114
  Receipt Date: 20160114
  Transmission Date: 20160526
  Serious: Yes (Hospitalization)
  Sender: FDA-Public Use
  Company Number: US-ASTRAZENECA-2016SE03099

PATIENT
  Age: 69 Year
  Sex: Male

DRUGS (2)
  1. BISOPROLOL [Concomitant]
     Active Substance: BISOPROLOL
     Indication: HYPERTENSION
     Route: 048
  2. KENZEN [Suspect]
     Active Substance: CANDESARTAN
     Indication: HYPERTENSION
     Dosage: UNK
     Route: 048
     Dates: end: 20151127

REACTIONS (4)
  - Gastric ulcer [Recovering/Resolving]
  - Intestinal ulcer [Unknown]
  - Duodenitis [Recovered/Resolved]
  - Gastritis [Recovering/Resolving]

NARRATIVE: CASE EVENT DATE: 201506
